APPROVED DRUG PRODUCT: FENTANYL-25
Active Ingredient: FENTANYL
Strength: 25MCG/HR
Dosage Form/Route: FILM, EXTENDED RELEASE;TRANSDERMAL
Application: A077154 | Product #001 | TE Code: AB
Applicant: SPECGX LLC
Approved: Feb 9, 2011 | RLD: No | RS: Yes | Type: RX